FAERS Safety Report 13381780 (Version 1)
Quarter: 2017Q1

REPORT INFORMATION
  Report Type: Spontaneous
  Country: AU (occurrence: AU)
  Receive Date: 20170329
  Receipt Date: 20170329
  Transmission Date: 20170429
  Serious: Yes (Other)
  Sender: FDA-Public Use
  Company Number: PHHY2017AU041946

PATIENT
  Age: 38 Year
  Sex: Male

DRUGS (7)
  1. OXYCODONE HYDROCHLORIDE. [Suspect]
     Active Substance: OXYCODONE HYDROCHLORIDE
     Dosage: MORE THAN 15 MG
     Route: 065
  2. CELECOXIB. [Suspect]
     Active Substance: CELECOXIB
     Indication: BACK PAIN
     Dosage: 200 MG, QD
     Route: 065
  3. OXYCODONE HYDROCHLORIDE. [Suspect]
     Active Substance: OXYCODONE HYDROCHLORIDE
     Dosage: 5-15 MG, QD (AS NEEDED)
     Route: 065
  4. DIAZEPAM. [Suspect]
     Active Substance: DIAZEPAM
     Indication: BACK PAIN
     Dosage: 5 MG, BID
     Route: 065
  5. PARACETAMOL+CODEINE [Suspect]
     Active Substance: ACETAMINOPHEN\CODEINE PHOSPHATE
     Indication: BACK PAIN
     Dosage: AS NEEDED, QID
     Route: 065
  6. OXYCODONE HYDROCHLORIDE. [Suspect]
     Active Substance: OXYCODONE HYDROCHLORIDE
     Indication: BACK PAIN
     Dosage: 3 DF, TID
     Route: 065
  7. IBUPROFEN. [Suspect]
     Active Substance: IBUPROFEN
     Indication: BACK PAIN
     Route: 065

REACTIONS (11)
  - Insomnia [Unknown]
  - Movement disorder [Unknown]
  - Constipation [Unknown]
  - Tenderness [Unknown]
  - Feeling abnormal [Unknown]
  - Lethargy [Unknown]
  - Drug ineffective [Unknown]
  - Drug administration error [Unknown]
  - Withdrawal syndrome [Unknown]
  - Toxicity to various agents [Unknown]
  - Pain [Unknown]
